FAERS Safety Report 6247532-1 (Version None)
Quarter: 2009Q2

REPORT INFORMATION
  Report Type: 
  Country: None (occurrence: None)
  Receive Date: 20090626
  Receipt Date: 20090621
  Transmission Date: 20091009
  Serious: Yes (Death, Other)
  Sender: FDA-Public Use
  Company Number: AT-JNJFOC-20090606883

PATIENT
  Age: 23 Year
  Sex: Female

DRUGS (2)
  1. DIPIDOLOR [Suspect]
     Indication: PAIN
     Route: 050
  2. TRAMADOL HCL [Suspect]
     Indication: PAIN
     Route: 065

REACTIONS (3)
  - MYOCARDIAL INFARCTION [None]
  - OVERDOSE [None]
  - RESPIRATORY DEPRESSION [None]
